FAERS Safety Report 12401534 (Version 2)
Quarter: 2016Q2

REPORT INFORMATION
  Report Type: Spontaneous
  Country: US (occurrence: US)
  Receive Date: 20160525
  Receipt Date: 20160527
  Transmission Date: 20160815
  Serious: No
  Sender: FDA-Public Use
  Company Number: US-SA-2015SA164357

PATIENT
  Age: 69 Year
  Sex: Female
  Weight: 117.93 kg

DRUGS (3)
  1. LANTUS SOLOSTAR [Suspect]
     Active Substance: INSULIN GLARGINE
     Dosage: DOSE:36 UNIT(S)
     Route: 065
     Dates: start: 201202
  2. PREDNISONE. [Suspect]
     Active Substance: PREDNISONE
     Route: 065
  3. SOLOSTAR [Concomitant]
     Active Substance: DEVICE
     Dates: start: 201202

REACTIONS (5)
  - Blood glucose increased [Unknown]
  - Wrong technique in product usage process [Unknown]
  - Dyspnoea [Unknown]
  - Scar [Unknown]
  - Drug administration error [Unknown]
